FAERS Safety Report 11474645 (Version 1)
Quarter: 2015Q3

REPORT INFORMATION
  Report Type: Spontaneous
  Country: US (occurrence: None)
  Receive Date: 20150908
  Receipt Date: 20150908
  Transmission Date: 20151125
  Serious: Yes (Hospitalization, Other)
  Sender: FDA-Public Use
  Company Number: None

PATIENT
  Age: 47 Year
  Sex: Female
  Weight: 58.97 kg

DRUGS (3)
  1. PROPOFOL. [Suspect]
     Active Substance: PROPOFOL
     Indication: SURGERY
     Route: 042
     Dates: start: 20141218, end: 20141218
  2. LYDACAINE [Concomitant]
  3. RISPERADONE [Concomitant]
     Active Substance: RISPERIDONE

REACTIONS (15)
  - Headache [None]
  - Memory impairment [None]
  - Wound haemorrhage [None]
  - Chills [None]
  - Rash [None]
  - Limb injury [None]
  - Fatigue [None]
  - Hypersensitivity [None]
  - Emotional disorder [None]
  - Amenorrhoea [None]
  - Pyrexia [None]
  - Palpitations [None]
  - Nausea [None]
  - Pain in extremity [None]
  - Mental disorder [None]

NARRATIVE: CASE EVENT DATE: 20141218
